FAERS Safety Report 18853094 (Version 2)
Quarter: 2022Q2

REPORT INFORMATION
  Report Type: Spontaneous
  Country: CH (occurrence: None)
  Receive Date: 20210205
  Receipt Date: 20220413
  Transmission Date: 20220721
  Serious: Yes (Other)
  Sender: FDA-Public Use
  Company Number: 2020SF73168

PATIENT
  Age: 55 Year
  Sex: Female

DRUGS (3)
  1. CRESTOR [Interacting]
     Active Substance: ROSUVASTATIN CALCIUM
     Indication: Blood cholesterol decreased
     Route: 048
     Dates: start: 201503, end: 20151007
  2. CRESTOR [Interacting]
     Active Substance: ROSUVASTATIN CALCIUM
     Indication: Blood cholesterol decreased
     Route: 048
     Dates: start: 201504, end: 20151007
  3. EUTHYROX [Interacting]
     Active Substance: LEVOTHYROXINE SODIUM
     Indication: Thyroid disorder
     Route: 065

REACTIONS (18)
  - Complex regional pain syndrome [Unknown]
  - Visual acuity reduced [Unknown]
  - Drug interaction [Unknown]
  - Myopathy [Unknown]
  - Myalgia [Not Recovered/Not Resolved]
  - Musculoskeletal stiffness [Unknown]
  - Toothache [Unknown]
  - Alopecia [Recovered/Resolved]
  - Gynaecomastia [Unknown]
  - Nightmare [Recovered/Resolved]
  - Muscle discomfort [Unknown]
  - Arthralgia [Unknown]
  - Gait disturbance [Unknown]
  - Amnesia [Unknown]
  - Blister [Unknown]
  - Swelling [Unknown]
  - Dizziness [Unknown]
  - Hypoaesthesia [Unknown]
